FAERS Safety Report 18317885 (Version 2)
Quarter: 2020Q4

REPORT INFORMATION
  Report Type: Spontaneous
  Country: GB (occurrence: GB)
  Receive Date: 20200928
  Receipt Date: 20201106
  Transmission Date: 20210113
  Serious: Yes (Death, Other)
  Sender: FDA-Public Use
  Company Number: GB-GILEAD-2020-0496183

PATIENT
  Age: 51 Year
  Sex: Male

DRUGS (3)
  1. METHADONE [Concomitant]
     Active Substance: METHADONE HYDROCHLORIDE
  2. EPCLUSA [Suspect]
     Active Substance: SOFOSBUVIR\VELPATASVIR
     Indication: HEPATITIS C
     Dosage: UNK
     Route: 065
     Dates: start: 202003
  3. MIRTAZAPINE. [Concomitant]
     Active Substance: MIRTAZAPINE

REACTIONS (7)
  - Myelodysplastic syndrome [Unknown]
  - Gangrene [Unknown]
  - Limb mass [Unknown]
  - Rash [Unknown]
  - Haemorrhage intracranial [Unknown]
  - Contusion [Unknown]
  - Death [Fatal]

NARRATIVE: CASE EVENT DATE: 20200823
